FAERS Safety Report 6937114-8 (Version None)
Quarter: 2010Q3

REPORT INFORMATION
  Report Type: 
  Country: None (occurrence: None)
  Receive Date: 20100823
  Receipt Date: 20100809
  Transmission Date: 20110219
  Serious: Yes (Other)
  Sender: FDA-Public Use
  Company Number: SE-MYLANLABS-2010S1014344

PATIENT
  Age: 42 Year
  Sex: Female

DRUGS (2)
  1. MYLAN-FLUOXETINE [Suspect]
     Indication: PRODUCT USED FOR UNKNOWN INDICATION
     Dates: start: 20100723
  2. FLUOXETINE STADA [Suspect]
     Indication: PRODUCT USED FOR UNKNOWN INDICATION
     Dates: end: 20100722

REACTIONS (2)
  - INSOMNIA [None]
  - SLEEP DISORDER [None]
